FAERS Safety Report 14527055 (Version 1)
Quarter: 2018Q1

REPORT INFORMATION
  Report Type: Spontaneous
  Country: BR (occurrence: BR)
  Receive Date: 20180213
  Receipt Date: 20180213
  Transmission Date: 20180509
  Serious: Yes (Other)
  Sender: FDA-Public Use
  Company Number: BR-SA-2018SA032565

PATIENT
  Age: 36 Year
  Sex: Female
  Weight: 145 kg

DRUGS (5)
  1. CALCIUM [Concomitant]
     Active Substance: CALCIUM
     Indication: PREGNANCY
     Route: 048
     Dates: start: 201711
  2. CLEXANE [Suspect]
     Active Substance: ENOXAPARIN SODIUM
     Indication: THROMBOSIS PROPHYLAXIS
     Dosage: DOSE: 1 INJECTION PER DAY
     Route: 058
     Dates: start: 201801
  3. METHYLDOPA. [Concomitant]
     Active Substance: METHYLDOPA
     Indication: BLOOD PRESSURE MEASUREMENT
     Route: 048
     Dates: start: 201711
  4. AAS [Concomitant]
     Active Substance: ASPIRIN
     Indication: PREGNANCY
     Dosage: FREQ: ONCE PER DAY, IN THE MORNING
     Route: 048
     Dates: start: 201708
  5. DTN-FOL [Concomitant]
     Indication: PREGNANCY
     Route: 048
     Dates: start: 201711

REACTIONS (4)
  - Exposure during pregnancy [Unknown]
  - Thyroid disorder [Unknown]
  - Urinary tract infection [Unknown]
  - Gestational diabetes [Unknown]
